FAERS Safety Report 25653683 (Version 1)
Quarter: 2025Q3

REPORT INFORMATION
  Report Type: Spontaneous
  Country: CA (occurrence: CA)
  Receive Date: 20250807
  Receipt Date: 20250807
  Transmission Date: 20251020
  Serious: Yes (Death, Life-Threatening, Hospitalization)
  Sender: Long Grove Pharmaceuticals
  Company Number: CA-Long Grove-000126

PATIENT
  Age: 3 Year
  Sex: Female

DRUGS (1)
  1. METHADONE [Suspect]
     Active Substance: METHADONE HYDROCHLORIDE

REACTIONS (8)
  - Toxic encephalopathy [Fatal]
  - Encephalitis [Fatal]
  - Toxicity to various agents [Fatal]
  - Accidental exposure to product by child [Fatal]
  - Accidental overdose [Fatal]
  - Hypoglycaemia [Fatal]
  - Brain herniation [Fatal]
  - Hypoxia [Fatal]
